FAERS Safety Report 20586319 (Version 1)
Quarter: 2022Q1

REPORT INFORMATION
  Report Type: Spontaneous
  Country: US (occurrence: US)
  Receive Date: 20220313
  Receipt Date: 20220313
  Transmission Date: 20220423
  Serious: Yes (Other)
  Sender: FDA-Public Use
  Company Number: US-TEVA-2022-US-2015604

PATIENT
  Sex: Male

DRUGS (1)
  1. QVAR REDIHALER [Suspect]
     Active Substance: BECLOMETHASONE DIPROPIONATE
     Dosage: DOSAGE FORM: INHALATION - AEROSOL
     Route: 055

REACTIONS (5)
  - Viral upper respiratory tract infection [Unknown]
  - Device malfunction [Unknown]
  - Asthma [Unknown]
  - Drug dose omission by device [Unknown]
  - Product availability issue [Unknown]
